FAERS Safety Report 12804018 (Version 1)
Quarter: 2016Q4

REPORT INFORMATION
  Report Type: Spontaneous
  Country: US (occurrence: US)
  Receive Date: 20161001
  Receipt Date: 20161001
  Transmission Date: 20170207
  Serious: Yes (Other)
  Sender: FDA-Public Use
  Company Number: None

PATIENT
  Age: 51 Year
  Sex: Female
  Weight: 63.9 kg

DRUGS (5)
  1. CULTURELLE [Concomitant]
     Active Substance: LACTOBACILLUS RHAMNOSUS
  2. VANCO [Concomitant]
     Active Substance: VANCOMYCIN
  3. PROBIOTICS [Concomitant]
     Active Substance: PROBIOTICS NOS
  4. FLORASTOR [Concomitant]
     Active Substance: SACCHAROMYCES CEREVISIAE
  5. CLINDAMYCIN. [Suspect]
     Active Substance: CLINDAMYCIN
     Indication: TOOTH INFECTION
     Route: 048

REACTIONS (2)
  - Influenza [None]
  - Clostridium difficile infection [None]
